FAERS Safety Report 8138416-2 (Version None)
Quarter: 2012Q1

REPORT INFORMATION
  Report Type: 
  Country: None (occurrence: None)
  Receive Date: 20120213
  Receipt Date: 20120127
  Transmission Date: 20120608
  Serious: Yes (Hospitalization)
  Sender: FDA-Public Use
  Company Number: TCI2011A06758

PATIENT
  Age: 72 Year
  Sex: Female

DRUGS (10)
  1. LANSOPRAZOLE [Suspect]
     Indication: PROPHYLAXIS
     Dosage: 15 MG (15 MG, 1 IN 1 D), PER ORAL
     Route: 048
     Dates: start: 20100324, end: 20110228
  2. WARFARIN SODIUM [Concomitant]
  3. ENALAPRIL MALEATE [Concomitant]
  4. LASIX [Concomitant]
  5. MAGLAX (MAGNESIUM OXIDE) [Concomitant]
  6. ASPIRIN [Concomitant]
  7. CRESTOR [Concomitant]
  8. PLAVIX [Concomitant]
  9. CALBLOCK (AZELNIDIPINE) [Concomitant]
  10. CARVEDILOL [Concomitant]

REACTIONS (7)
  - GASTROENTERITIS ESCHERICHIA COLI [None]
  - COLITIS MICROSCOPIC [None]
  - DIVERTICULUM INTESTINAL [None]
  - HYPOALBUMINAEMIA [None]
  - OEDEMA PERIPHERAL [None]
  - GASTROINTESTINAL EROSION [None]
  - ENTEROCOLITIS INFECTIOUS [None]
